FAERS Safety Report 23210664 (Version 1)
Quarter: 2023Q4

REPORT INFORMATION
  Report Type: Spontaneous
  Country: US (occurrence: US)
  Receive Date: 20231121
  Receipt Date: 20231121
  Transmission Date: 20240109
  Serious: No
  Sender: FDA-Public Use
  Company Number: US-009507513-2311USA005113

PATIENT
  Age: 77 Year

DRUGS (1)
  1. PRIMAXIN IV [Suspect]
     Active Substance: CILASTATIN SODIUM\IMIPENEM
     Dosage: 250 MG
     Route: 042
     Dates: start: 202311

REACTIONS (3)
  - Product preparation error [Unknown]
  - Incorrect dose administered [Unknown]
  - No adverse event [Unknown]

NARRATIVE: CASE EVENT DATE: 20231101
